FAERS Safety Report 5080416-3 (Version None)
Quarter: 2006Q3

REPORT INFORMATION
  Report Type: 
  Country: None (occurrence: None)
  Receive Date: 20060814
  Receipt Date: 20060814
  Transmission Date: 20061208
  Serious: No
  Sender: FDA-Public Use
  Company Number: None

PATIENT
  Sex: Female

DRUGS (2)
  1. AZITHROMYCIN [Suspect]
     Dosage: 1/2 TSP.  DAILY X 6 DAYS  PO
     Route: 048
     Dates: start: 20060810
  2. AZITHROMYCIN [Suspect]
     Dosage: 1/2 TSP.  DAILY X 6 DAYS  PO
     Route: 048
     Dates: start: 20060811

REACTIONS (2)
  - PHARMACEUTICAL PRODUCT COMPLAINT [None]
  - VOMITING [None]
